FAERS Safety Report 8859399 (Version 1)
Quarter: 2012Q4

REPORT INFORMATION
  Report Type: 
  Country: BR (occurrence: BR)
  Receive Date: 20121024
  Receipt Date: 20121024
  Transmission Date: 20130627
  Serious: Yes (Other)
  Sender: FDA-Public Use
  Company Number: BR-JNJFOC-20121011929

PATIENT
  Age: 35 None
  Sex: Female

DRUGS (4)
  1. XARELTO [Suspect]
     Indication: HYPERCOAGULATION
     Route: 048
     Dates: start: 20121010
  2. XARELTO [Suspect]
     Indication: HYPERCOAGULATION
     Route: 048
     Dates: start: 20120927, end: 20121010
  3. XARELTO [Suspect]
     Indication: HYPERCOAGULATION
     Route: 048
     Dates: start: 20120913, end: 20120926
  4. DROSPIRENONE\ETHINYL ESTRADIOL [Suspect]
     Indication: PRODUCT USED FOR UNKNOWN INDICATION
     Route: 048

REACTIONS (13)
  - Vaginal haemorrhage [Recovered/Resolved]
  - Thrombosis [Unknown]
  - Pharyngeal haemorrhage [Recovered/Resolved]
  - Pulmonary embolism [Unknown]
  - Protein S deficiency [Unknown]
  - Epistaxis [Recovered/Resolved]
  - Epistaxis [Recovered/Resolved]
  - Gingival bleeding [Recovered/Resolved]
  - Nausea [Unknown]
  - Lactose intolerance [Unknown]
  - No adverse event [Unknown]
  - Malaise [None]
  - International normalised ratio increased [None]
